FAERS Safety Report 10499211 (Version 3)
Quarter: 2014Q4

REPORT INFORMATION
  Report Type: Report from Study
  Country: US (occurrence: US)
  Receive Date: 20141006
  Receipt Date: 20141114
  Transmission Date: 20150528
  Serious: Yes (Hospitalization)
  Sender: FDA-Public Use
  Company Number: US-SA-2014SA134911

PATIENT
  Age: 67 Year
  Sex: Female
  Weight: 194 kg

DRUGS (3)
  1. LANTUS [Suspect]
     Active Substance: INSULIN GLARGINE
     Indication: TYPE 2 DIABETES MELLITUS
     Dosage: DOSE: 10 UNITS AT LUNCH AND 40 UNITS AT BEDTIME
     Route: 065
  2. ORAL ANTIDIABETICS [Concomitant]
     Active Substance: UNSPECIFIED INGREDIENT
  3. LANTUS [Suspect]
     Active Substance: INSULIN GLARGINE
     Indication: TYPE 2 DIABETES MELLITUS
     Route: 065
     Dates: start: 2012

REACTIONS (6)
  - Renal failure [Unknown]
  - Visual impairment [Unknown]
  - Drug administration error [Unknown]
  - Hospitalisation [Unknown]
  - Cataract [Unknown]
  - Pain [Unknown]
